FAERS Safety Report 7523751-9 (Version None)
Quarter: 2011Q2

REPORT INFORMATION
  Report Type: 
  Country: None (occurrence: None)
  Receive Date: 20110603
  Receipt Date: 20110602
  Transmission Date: 20111010
  Serious: Yes (Other)
  Sender: FDA-Public Use
  Company Number: US-AMGEN-USASP2011025701

PATIENT
  Sex: Female
  Weight: 56.508 kg

DRUGS (5)
  1. CALCIUM CARBONATE [Concomitant]
  2. CIPROFLAXINA HC LAZAR [Concomitant]
  3. GLUCOSAMINE [Concomitant]
  4. LANSOPRAZOLE [Concomitant]
  5. NPLATE [Suspect]
     Indication: IDIOPATHIC THROMBOCYTOPENIC PURPURA
     Dosage: 110 A?G, UNK
     Route: 058
     Dates: start: 20101029, end: 20101126

REACTIONS (2)
  - PAIN [None]
  - DIZZINESS [None]
